FAERS Safety Report 16855745 (Version 1)
Quarter: 2019Q4

REPORT INFORMATION
  Report Type: Spontaneous
  Country: US (occurrence: US)
  Receive Date: 20190926
  Receipt Date: 20190926
  Transmission Date: 20200122
  Serious: Yes (Other)
  Sender: FDA-Public Use
  Company Number: None

PATIENT
  Age: 77 Year
  Sex: Female
  Weight: 61.2 kg

DRUGS (1)
  1. GLASSIA [Suspect]
     Active Substance: .ALPHA.1-PROTEINASE INHIBITOR HUMAN
     Indication: ALPHA-1 ANTI-TRYPSIN DEFICIENCY
     Dosage: ?          OTHER FREQUENCY:ONCE WEEKLY;?
     Route: 042

REACTIONS (6)
  - Nausea [None]
  - Chest discomfort [None]
  - Heart rate increased [None]
  - Headache [None]
  - Blood pressure increased [None]
  - Flushing [None]

NARRATIVE: CASE EVENT DATE: 20190926
